FAERS Safety Report 13071629 (Version 1)
Quarter: 2016Q4

REPORT INFORMATION
  Report Type: Spontaneous
  Country: FR (occurrence: FR)
  Receive Date: 20161229
  Receipt Date: 20161229
  Transmission Date: 20170207
  Serious: Yes (Other)
  Sender: FDA-Public Use
  Company Number: FR-GLAXOSMITHKLINE-FR2016GSK191490

PATIENT
  Age: 73 Year
  Sex: Female

DRUGS (3)
  1. AVAMYS [Suspect]
     Active Substance: FLUTICASONE FUROATE
     Indication: PRODUCT USED FOR UNKNOWN INDICATION
     Dosage: 2 DF, QD, 27.5 MCG
     Route: 055
     Dates: start: 20161010, end: 20161102
  2. SOLUPRED [Suspect]
     Active Substance: PREDNISOLONE
     Indication: PRODUCT USED FOR UNKNOWN INDICATION
     Dosage: 2 DF, QD, DOSAGE STRENGTH UNSPECIFIED
     Route: 048
     Dates: start: 20161010, end: 20161102
  3. ALVESCO [Suspect]
     Active Substance: CICLESONIDE
     Indication: PRODUCT USED FOR UNKNOWN INDICATION
     Dosage: 2 DF, QD, DOSAGE STRENGTH UNSPECIFIED
     Route: 055
     Dates: start: 20161010, end: 20161102

REACTIONS (2)
  - Visual acuity reduced [Not Recovered/Not Resolved]
  - Visual impairment [Not Recovered/Not Resolved]

NARRATIVE: CASE EVENT DATE: 201610
